FAERS Safety Report 23093437 (Version 1)
Quarter: 2023Q4

REPORT INFORMATION
  Report Type: Spontaneous
  Country: US (occurrence: US)
  Receive Date: 20231022
  Receipt Date: 20231022
  Transmission Date: 20240109
  Serious: Yes (Death)
  Sender: FDA-Public Use
  Company Number: US-Teikoku Pharma USA-TPU2023-00558

PATIENT

DRUGS (1)
  1. LIDODERM [Suspect]
     Active Substance: LIDOCAINE
     Indication: Product used for unknown indication
     Route: 061

REACTIONS (1)
  - Death [Fatal]
